FAERS Safety Report 20680264 (Version 2)
Quarter: 2022Q2

REPORT INFORMATION
  Report Type: Spontaneous
  Country: US (occurrence: US)
  Receive Date: 20220406
  Receipt Date: 20220428
  Transmission Date: 20220720
  Serious: Yes (Hospitalization, Other)
  Sender: FDA-Public Use
  Company Number: US-ALLERGAN-2211179US

PATIENT
  Sex: Male
  Weight: 75.601 kg

DRUGS (6)
  1. NORCO [Suspect]
     Active Substance: ACETAMINOPHEN\HYDROCODONE BITARTRATE
     Indication: Pain
     Dosage: 1 DF, QID
     Route: 048
  2. NORCO [Suspect]
     Active Substance: ACETAMINOPHEN\HYDROCODONE BITARTRATE
     Dosage: 1 DF 5 TIMES A DAY
     Route: 048
  3. BENZOSED [MIDAZOLAM] [Concomitant]
  4. FLEXERIL [Concomitant]
     Active Substance: CYCLOBENZAPRINE HYDROCHLORIDE
     Indication: Muscle relaxant therapy
     Dosage: UNK, BID
  5. LISINOPRIL [Concomitant]
     Active Substance: LISINOPRIL
     Indication: Hypertension
  6. BENZODIAZEPINE [Concomitant]
     Active Substance: BENZODIAZEPINE

REACTIONS (12)
  - Pneumonia [Unknown]
  - Hypertension [Unknown]
  - General physical health deterioration [Unknown]
  - Weight decreased [Unknown]
  - Cough [Unknown]
  - Respiratory tract congestion [Unknown]
  - Neck surgery [Unknown]
  - Bone pain [Unknown]
  - Neuralgia [Unknown]
  - Insomnia [Unknown]
  - Anxiety [Unknown]
  - Hyperhidrosis [Unknown]

NARRATIVE: CASE EVENT DATE: 20211201
